FAERS Safety Report 24253510 (Version 1)
Quarter: 2024Q3

REPORT INFORMATION
  Report Type: Spontaneous
  Country: NL (occurrence: NL)
  Receive Date: 20240827
  Receipt Date: 20240827
  Transmission Date: 20241017
  Serious: Yes (Life-Threatening)
  Sender: TEVA
  Company Number: None

PATIENT
  Age: 28 Year
  Sex: Male
  Weight: 88 kg

DRUGS (1)
  1. TRAMADOL [Suspect]
     Active Substance: TRAMADOL\TRAMADOL HYDROCHLORIDE
     Indication: Arthralgia
     Dosage: 100 MG 4X PER DAY , / BRAND NAME NOT SPECIFIED
     Route: 065
     Dates: start: 20240415

REACTIONS (4)
  - Dependence [Recovering/Resolving]
  - Haematoma [Recovering/Resolving]
  - Aggression [Recovering/Resolving]
  - Fall [Recovering/Resolving]
